FAERS Safety Report 11154840 (Version 1)
Quarter: 2015Q2

REPORT INFORMATION
  Report Type: Spontaneous
  Country: GB (occurrence: GB)
  Receive Date: 20150602
  Receipt Date: 20150602
  Transmission Date: 20150821
  Serious: Yes (Other)
  Sender: FDA-Public Use
  Company Number: GB-ACCORD-031000

PATIENT
  Age: 41 Year
  Sex: Female

DRUGS (4)
  1. TINZAPARIN [Concomitant]
     Active Substance: TINZAPARIN
  2. CLOPIDOGREL [Suspect]
     Active Substance: CLOPIDOGREL BISULFATE
     Indication: PERIPHERAL ARTERY THROMBOSIS
     Route: 048
  3. IRON [Concomitant]
     Active Substance: IRON
  4. FOLIC ACID. [Concomitant]
     Active Substance: FOLIC ACID

REACTIONS (2)
  - Vomiting [Unknown]
  - Faeces discoloured [Unknown]
